FAERS Safety Report 11046274 (Version 3)
Quarter: 2015Q2

REPORT INFORMATION
  Report Type: Spontaneous
  Country: IT (occurrence: IT)
  Receive Date: 20150418
  Receipt Date: 20150613
  Transmission Date: 20150821
  Serious: Yes (Hospitalization)
  Sender: FDA-Public Use
  Company Number: PHHY2015IT046163

PATIENT
  Age: 29 Year
  Sex: Female

DRUGS (9)
  1. DAKTARIN [Interacting]
     Active Substance: MICONAZOLE NITRATE
     Indication: ANTIFUNGAL TREATMENT
     Dosage: 1 DF, BID (FOR 1 WEEK)
     Route: 048
  2. DIFLUCAN [Interacting]
     Active Substance: FLUCONAZOLE
     Indication: ANTIFUNGAL TREATMENT
  3. TAVOR [Concomitant]
     Active Substance: LORAZEPAM
     Indication: PRODUCT USED FOR UNKNOWN INDICATION
     Dosage: 50 DRP, DAILY
     Route: 048
     Dates: start: 20130909, end: 20131009
  4. LEPONEX [Suspect]
     Active Substance: CLOZAPINE
     Indication: PSYCHOTIC DISORDER
     Dosage: 25-225 MG, QD
     Route: 048
     Dates: start: 20130904, end: 20131003
  5. YASMIN [Interacting]
     Active Substance: DROSPIRENONE\ETHINYL ESTRADIOL
     Indication: CONTRACEPTION
  6. DELORAZEPAM [Concomitant]
     Active Substance: DELORAZEPAM
     Indication: PRODUCT USED FOR UNKNOWN INDICATION
     Dosage: 5 MG, UNK
     Route: 042
     Dates: start: 20130909, end: 20131009
  7. DIFLUCAN [Interacting]
     Active Substance: FLUCONAZOLE
     Indication: ORAL CANDIDIASIS
     Dosage: 1 DF, QD
     Route: 048
     Dates: start: 20130829, end: 20130904
  8. YASMIN [Interacting]
     Active Substance: DROSPIRENONE\ETHINYL ESTRADIOL
     Indication: OVARIAN CYST
     Dosage: 1 DF, QD
     Route: 048
     Dates: start: 20130807, end: 20130925
  9. DAKTARIN [Interacting]
     Active Substance: MICONAZOLE NITRATE
     Indication: ORAL CANDIDIASIS
     Dosage: UNK
     Route: 048

REACTIONS (5)
  - Pericarditis [Recovered/Resolved]
  - Drug effect increased [Recovered/Resolved]
  - Toxicity to various agents [Recovered/Resolved]
  - Drug interaction [Recovered/Resolved]
  - Eosinophilia [Recovered/Resolved]

NARRATIVE: CASE EVENT DATE: 20130924
